FAERS Safety Report 14708127 (Version 1)
Quarter: 2018Q2

REPORT INFORMATION
  Report Type: Report from Study
  Country: US (occurrence: US)
  Receive Date: 20180403
  Receipt Date: 20180403
  Transmission Date: 20180711
  Serious: Yes (Hospitalization)
  Sender: FDA-Public Use
  Company Number: US-ROCHE-2075167

PATIENT
  Sex: Male

DRUGS (3)
  1. VALCYTE [Suspect]
     Active Substance: VALGANCICLOVIR HYDROCHLORIDE
     Indication: LUNG TRANSPLANT
     Route: 048
     Dates: start: 20151111
  2. VALCYTE [Suspect]
     Active Substance: VALGANCICLOVIR HYDROCHLORIDE
     Route: 048
  3. VALCYTE [Suspect]
     Active Substance: VALGANCICLOVIR HYDROCHLORIDE
     Dosage: ON 28/SEP/2016, HE RECEIVED THE MOST RECENT KNOWN DOSE OF VALGANCICLOVIR.
     Route: 048
     Dates: start: 20151111

REACTIONS (4)
  - Lung infection [Recovering/Resolving]
  - Off label use [Unknown]
  - Swallow study abnormal [Unknown]
  - Intentional product use issue [Unknown]
